FAERS Safety Report 4359171-8 (Version None)
Quarter: 2004Q2

REPORT INFORMATION
  Report Type: 
  Country: None (occurrence: None)
  Receive Date: 20040517
  Receipt Date: 20040517
  Transmission Date: 20050107
  Serious: Yes (Hospitalization)
  Sender: FDA-Public Use
  Company Number: None

PATIENT
  Age: 36 Year
  Sex: Female

DRUGS (10)
  1. DILANTIN [Suspect]
     Indication: CONVULSION
     Dosage: 500 MG QD
     Dates: start: 20020401
  2. SENOKOT [Concomitant]
  3. FESO4 [Concomitant]
  4. LEVOTHYROXINE SODIUM [Concomitant]
  5. LISINOPRIL [Concomitant]
  6. RABEPRAZOLE SODIUM [Concomitant]
  7. KETOCONAZOLE [Concomitant]
  8. THEOPHYLLINE [Concomitant]
  9. ATORVASTATIN CALCIUM [Concomitant]
  10. DSS [Concomitant]

REACTIONS (1)
  - DRUG INTERACTION [None]
